FAERS Safety Report 26123479 (Version 1)
Quarter: 2025Q4

REPORT INFORMATION
  Report Type: Report from Study
  Country: JP (occurrence: JP)
  Receive Date: 20251204
  Receipt Date: 20251204
  Transmission Date: 20260117
  Serious: Yes (Other)
  Sender: TAKEDA
  Company Number: JP-TAKEDA-2025TJP012344

PATIENT
  Age: 4 Decade
  Sex: Female

DRUGS (1)
  1. MARIBAVIR [Suspect]
     Active Substance: MARIBAVIR
     Indication: Cytomegalovirus infection
     Dosage: 400 MILLIGRAM

REACTIONS (2)
  - Haemolytic anaemia [Not Recovered/Not Resolved]
  - Nausea [Not Recovered/Not Resolved]
